FAERS Safety Report 7321861-2 (Version None)
Quarter: 2011Q1

REPORT INFORMATION
  Report Type: 
  Country: None (occurrence: None)
  Receive Date: 20110228
  Receipt Date: 20110215
  Transmission Date: 20110831
  Serious: Yes (Hospitalization)
  Sender: FDA-Public Use
  Company Number: PHHY2011GB12187

PATIENT
  Age: 87 Year
  Sex: Male

DRUGS (3)
  1. IBUPROFEN [Concomitant]
     Dosage: 10 %, UNK
     Dates: start: 20081014
  2. DICLOFENAC [Suspect]
     Dosage: 25 MG, TID
     Route: 048
     Dates: start: 20080708, end: 20080911
  3. DICLOFENAC [Suspect]
     Dosage: 25 MG, TID
     Route: 048
     Dates: start: 20090529, end: 20100113

REACTIONS (5)
  - LUNG NEOPLASM [None]
  - DYSPNOEA [None]
  - METASTASES TO LUNG [None]
  - PULMONARY EMBOLISM [None]
  - CIRCULATORY COLLAPSE [None]
